FAERS Safety Report 4899708-3 (Version None)
Quarter: 2006Q1

REPORT INFORMATION
  Report Type: 
  Country: None (occurrence: None)
  Receive Date: 20060118
  Receipt Date: 20050615
  Transmission Date: 20060701
  Serious: Yes (Death, Hospitalization)
  Sender: FDA-Public Use
  Company Number: 2005001131

PATIENT
  Age: 70 Year
  Sex: Female

DRUGS (7)
  1. TARCEVA [Suspect]
     Indication: NON-SMALL CELL LUNG CANCER
     Dosage: 150 MG (QD), ORAL
     Route: 048
     Dates: start: 20050401, end: 20050525
  2. VICODIN [Concomitant]
  3. CELEBREX [Concomitant]
  4. TRAZODONE HCL [Concomitant]
  5. SYNTHROID [Concomitant]
  6. ATIVAN [Concomitant]
  7. INSULIN (INSULIN) [Concomitant]

REACTIONS (1)
  - INTERSTITIAL LUNG DISEASE [None]
